FAERS Safety Report 11665085 (Version 2)
Quarter: 2015Q4

REPORT INFORMATION
  Report Type: Spontaneous
  Country: US (occurrence: US)
  Receive Date: 20151027
  Receipt Date: 20151106
  Transmission Date: 20160304
  Serious: Yes (Other)
  Sender: FDA-Public Use
  Company Number: US-NPS_PHARMACEUTICALS-002560

PATIENT
  Age: 43 Year
  Sex: Female
  Weight: 108 kg

DRUGS (1)
  1. NATPARA (PARATHYROID HORMONE) [Suspect]
     Active Substance: PARATHYROID HORMONE
     Indication: HYPOPARATHYROIDISM
     Route: 058
     Dates: start: 201509

REACTIONS (5)
  - Gait disturbance [Recovered/Resolved]
  - Lethargy [Recovered/Resolved]
  - Disorientation [Recovered/Resolved]
  - Insomnia [Recovered/Resolved]
  - Headache [Not Recovered/Not Resolved]

NARRATIVE: CASE EVENT DATE: 201509
